FAERS Safety Report 6786845-1 (Version None)
Quarter: 2010Q2

REPORT INFORMATION
  Report Type: 
  Country: None (occurrence: None)
  Receive Date: 20100623
  Receipt Date: 20100615
  Transmission Date: 20101027
  Serious: Yes (Hospitalization)
  Sender: FDA-Public Use
  Company Number: TW-ABBOTT-10P-153-0647595-00

PATIENT
  Age: 53 Year
  Sex: Female
  Weight: 77 kg

DRUGS (1)
  1. SIBUTIL [Suspect]
     Indication: DRUG USE FOR UNKNOWN INDICATION
     Route: 048
     Dates: start: 20100522

REACTIONS (4)
  - BACK PAIN [None]
  - BLOOD PRESSURE INCREASED [None]
  - HOSPITALISATION [None]
  - OEDEMA [None]
